FAERS Safety Report 9721010 (Version 1)
Quarter: 2013Q4

REPORT INFORMATION
  Report Type: Spontaneous
  Country: FR (occurrence: FR)
  Receive Date: 20131129
  Receipt Date: 20131129
  Transmission Date: 20140711
  Serious: Yes (Life-Threatening, Hospitalization)
  Sender: FDA-Public Use
  Company Number: FR-ASTRAZENECA-2013SE87238

PATIENT
  Age: 251 Month
  Sex: Female

DRUGS (14)
  1. INEXIUM [Suspect]
     Route: 048
     Dates: start: 201309, end: 20131007
  2. TAZOCILLINE [Suspect]
     Indication: INFECTION
     Dosage: 4 G, THREE TIMES A DAY
     Route: 042
     Dates: start: 20130914, end: 20130930
  3. VANCOMYCINE [Suspect]
     Indication: INFECTION
     Route: 042
     Dates: start: 201309, end: 20130930
  4. ACTISKENAN [Suspect]
     Route: 048
     Dates: start: 201309, end: 2013
  5. STILNOX [Suspect]
     Route: 048
     Dates: start: 201309, end: 2013
  6. DOLIPRANE [Suspect]
     Route: 048
     Dates: start: 201309, end: 20131007
  7. AUGMENTIN [Suspect]
     Route: 065
     Dates: start: 20130907, end: 20130912
  8. ACUPAN [Suspect]
     Route: 065
     Dates: start: 201309, end: 2013
  9. ATARAX [Suspect]
     Route: 048
     Dates: start: 201309, end: 20131007
  10. HYPNOVEL [Concomitant]
     Dates: start: 20130907, end: 20130912
  11. SUFENTANIL [Concomitant]
     Dates: start: 20130907, end: 20130912
  12. NORADRENALINE [Concomitant]
     Dosage: 0.375 GAMMA/KG/MIN
     Dates: start: 20130907, end: 20130910
  13. LOVENOX [Concomitant]
     Route: 058
     Dates: start: 201309
  14. BIRTH-CONTROL PILL [Concomitant]

REACTIONS (1)
  - Drug reaction with eosinophilia and systemic symptoms [Recovering/Resolving]
